FAERS Safety Report 19674297 (Version 1)
Quarter: 2021Q3

REPORT INFORMATION
  Report Type: Report from Study
  Country: AR (occurrence: AR)
  Receive Date: 20210809
  Receipt Date: 20210809
  Transmission Date: 20211014
  Serious: Yes (Other)
  Sender: FDA-Public Use
  Company Number: AR-JNJFOC-20210812039

PATIENT
  Age: 54 Year
  Sex: Female
  Weight: 88 kg

DRUGS (1)
  1. REMICADE [Suspect]
     Active Substance: INFLIXIMAB
     Indication: RHEUMATOID ARTHRITIS
     Route: 042
     Dates: start: 20200213

REACTIONS (1)
  - Thyroid cancer [Recovering/Resolving]

NARRATIVE: CASE EVENT DATE: 20210201
